FAERS Safety Report 7007443-0 (Version None)
Quarter: 2010Q3

REPORT INFORMATION
  Report Type: 
  Country: None (occurrence: None)
  Receive Date: 20100920
  Receipt Date: 20100907
  Transmission Date: 20110219
  Serious: Yes (Other)
  Sender: FDA-Public Use
  Company Number: 017790

PATIENT
  Sex: Male
  Weight: 101.7 kg

DRUGS (17)
  1. CIMZIA [Suspect]
     Indication: CROHN'S DISEASE
     Dosage: (SUBCUTANEOUS)
     Route: 058
     Dates: start: 20090406
  2. NORCO [Concomitant]
  3. PROTONIX  /01263201/ [Concomitant]
  4. BEGLAN [Concomitant]
  5. SAB-PENTASONE [Concomitant]
  6. CORTEF /00028601/ [Concomitant]
  7. ALBUTEROL /00139501/ [Concomitant]
  8. ALLEGRA [Concomitant]
  9. ENALAPRIL MALEATE [Concomitant]
  10. NITROSTAT [Concomitant]
  11. CARVEDILOL [Concomitant]
  12. SPIRIVA [Concomitant]
  13. BACTRIM DS [Concomitant]
  14. SYMBICORT [Concomitant]
  15. AMBIEN [Concomitant]
  16. ATIVAN [Concomitant]
  17. PROPRANOLOL  WELLBUTRIN /00700501/ [Concomitant]

REACTIONS (1)
  - DIABETES MELLITUS [None]
